FAERS Safety Report 7098560-8 (Version None)
Quarter: 2010Q4

REPORT INFORMATION
  Report Type: 
  Country: None (occurrence: None)
  Receive Date: 20101112
  Receipt Date: 20101101
  Transmission Date: 20110411
  Serious: Yes (Other)
  Sender: FDA-Public Use
  Company Number: BR-JNJFOC-20101104032

PATIENT
  Sex: Female

DRUGS (1)
  1. ORTHO EVRA [Suspect]
     Indication: ILL-DEFINED DISORDER
     Dosage: NORELGESTROMIN 6 MG/ ETHINYL ESTRADIOL 0.6 MG
     Route: 062

REACTIONS (4)
  - BREAST PAIN [None]
  - BREAST SWELLING [None]
  - VASODILATATION [None]
  - WEIGHT INCREASED [None]
